FAERS Safety Report 15906776 (Version 1)
Quarter: 2019Q1

REPORT INFORMATION
  Report Type: Report from Study
  Country: US (occurrence: US)
  Receive Date: 20190204
  Receipt Date: 20190204
  Transmission Date: 20190417
  Serious: Yes (Death)
  Sender: FDA-Public Use
  Company Number: US-ROCHE-2244504

PATIENT
  Sex: Female

DRUGS (15)
  1. BENZTROPINE. [Concomitant]
     Active Substance: BENZTROPINE
  2. SEROQUEL [Concomitant]
     Active Substance: QUETIAPINE FUMARATE
  3. BUPROPION. [Concomitant]
     Active Substance: BUPROPION
  4. LAMOTRIGINE. [Concomitant]
     Active Substance: LAMOTRIGINE
  5. SIMVASTATIN. [Concomitant]
     Active Substance: SIMVASTATIN
  6. TOPIRAMATE. [Concomitant]
     Active Substance: TOPIRAMATE
  7. RISPERIDONE. [Concomitant]
     Active Substance: RISPERIDONE
  8. VENLAFAXINE [Concomitant]
     Active Substance: VENLAFAXINE HYDROCHLORIDE
  9. QVAR [Concomitant]
     Active Substance: BECLOMETHASONE DIPROPIONATE
  10. GABAPENTIN. [Concomitant]
     Active Substance: GABAPENTIN
  11. PANTOPRAZOL [Concomitant]
     Active Substance: PANTOPRAZOLE SODIUM
  12. ESBRIET [Suspect]
     Active Substance: PIRFENIDONE
     Indication: IDIOPATHIC PULMONARY FIBROSIS
     Dosage: 1 TABLET 3 TIMES DAILY FOR 2 WEEKS, THEN 2 TABLETS 3 TIMES DAILY FOR 2 WEEKS AND THEN 3 TABLETS BY M
     Route: 048
     Dates: start: 201812
  13. LATUDA [Concomitant]
     Active Substance: LURASIDONE HYDROCHLORIDE
  14. PROPRANOLOL [Concomitant]
     Active Substance: PROPRANOLOL HYDROCHLORIDE
  15. QUETIAPINE. [Concomitant]
     Active Substance: QUETIAPINE

REACTIONS (1)
  - Death [Fatal]
